FAERS Safety Report 16513280 (Version 1)
Quarter: 2019Q3

REPORT INFORMATION
  Report Type: Spontaneous
  Country: US (occurrence: US)
  Receive Date: 20190701
  Receipt Date: 20190701
  Transmission Date: 20191004
  Serious: No
  Sender: FDA-Public Use
  Company Number: US-GE HEALTHCARE LIFE SCIENCES-2019CSU002107

PATIENT
  Age: 68 Year
  Sex: Male

DRUGS (3)
  1. SSKI [Concomitant]
     Active Substance: POTASSIUM IODIDE
     Dosage: 0.3 ML, UNK
     Route: 048
     Dates: start: 20181030, end: 20181030
  2. DATSCAN [Suspect]
     Active Substance: IODINE\IOFLUPANE I-123
     Indication: DIAGNOSTIC PROCEDURE
     Dosage: 196.1 MBQ (5.3 MCI), SINGLE
     Route: 042
     Dates: start: 20181030, end: 20181030
  3. DATSCAN [Suspect]
     Active Substance: IODINE\IOFLUPANE I-123
     Indication: PRODUCT USED FOR UNKNOWN INDICATION

REACTIONS (2)
  - No adverse event [Recovered/Resolved]
  - Drug ineffective [Recovered/Resolved]

NARRATIVE: CASE EVENT DATE: 20181030
